FAERS Safety Report 17449328 (Version 2)
Quarter: 2020Q1

REPORT INFORMATION
  Report Type: Spontaneous
  Country: US (occurrence: US)
  Receive Date: 20200224
  Receipt Date: 20200228
  Transmission Date: 20200409
  Serious: No
  Sender: FDA-Public Use
  Company Number: US-BIOGEN-2020BI00838259

PATIENT
  Age: 29 Year
  Sex: Male
  Weight: 85.8 kg

DRUGS (2)
  1. TYSABRI [Suspect]
     Active Substance: NATALIZUMAB
     Indication: MULTIPLE SCLEROSIS
     Dosage: INJ 300MG/15ML
     Route: 042
     Dates: start: 202002
  2. TYSABRI [Suspect]
     Active Substance: NATALIZUMAB
     Dosage: INFUSED OVER 1 HOUR
     Route: 042
     Dates: start: 20190110, end: 201912

REACTIONS (4)
  - Nystagmus [Unknown]
  - Nervous system disorder [Unknown]
  - Prescribed underdose [Unknown]
  - Diplopia [Unknown]

NARRATIVE: CASE EVENT DATE: 20200210
